FAERS Safety Report 10066875 (Version 2)
Quarter: 2014Q2

REPORT INFORMATION
  Report Type: Spontaneous
  Country: CO (occurrence: CO)
  Receive Date: 20140408
  Receipt Date: 20140408
  Transmission Date: 20141212
  Serious: Yes (Hospitalization, Other)
  Sender: FDA-Public Use
  Company Number: CO-AMGEN INC.-COLSP2014007756

PATIENT
  Age: 54 Year
  Sex: Female

DRUGS (1)
  1. ENBREL [Suspect]
     Indication: RHEUMATOID ARTHRITIS
     Dosage: 50 MG, WEEKLY
     Route: 058
     Dates: start: 2010

REACTIONS (5)
  - Immune system disorder [Recovered/Resolved]
  - Cough [Recovered/Resolved]
  - Erysipelas [Recovered/Resolved]
  - Influenza [Recovered/Resolved]
  - Joint swelling [Not Recovered/Not Resolved]
